FAERS Safety Report 16146375 (Version 7)
Quarter: 2022Q2

REPORT INFORMATION
  Report Type: Spontaneous
  Country: US (occurrence: US)
  Receive Date: 20190402
  Receipt Date: 20220429
  Transmission Date: 20220721
  Serious: No
  Sender: FDA-Public Use
  Company Number: US-PFIZER INC-2019142400

PATIENT
  Age: 84 Year
  Sex: Female
  Weight: 72 kg

DRUGS (5)
  1. LYRICA [Suspect]
     Active Substance: PREGABALIN
     Indication: Neuropathy peripheral
     Dosage: 50 MG, 2X/DAY(TAKE 1 CAPSULE BY MOUTH 2 TIMES DAILY)
     Route: 048
     Dates: start: 201903, end: 201905
  2. LYRICA [Suspect]
     Active Substance: PREGABALIN
     Indication: Polyneuropathy
     Dosage: 50 MG, 1X/DAY (EVERY BEDTIME)
     Route: 048
  3. LYRICA [Suspect]
     Active Substance: PREGABALIN
     Indication: Neuralgia
     Dosage: 50 MG, 2X/DAY
     Route: 048
     Dates: start: 201903
  4. LYRICA [Suspect]
     Active Substance: PREGABALIN
     Dosage: 50 MG, 1X/DAY(1 CAP QHS (EVERY BEDTIME) X 1 WEEK)
     Route: 048
  5. LYRICA [Suspect]
     Active Substance: PREGABALIN
     Dosage: 50 MG, 2X/DAY(THEN 2 CAPS QHS (EVERY BEDTIME))
     Route: 048

REACTIONS (3)
  - Memory impairment [Unknown]
  - Pain [Recovered/Resolved]
  - Gait disturbance [Recovered/Resolved]

NARRATIVE: CASE EVENT DATE: 20190101
